FAERS Safety Report 21598546 (Version 4)
Quarter: 2024Q2

REPORT INFORMATION
  Report Type: Report from Study
  Country: US (occurrence: US)
  Receive Date: 20221115
  Receipt Date: 20240426
  Transmission Date: 20240716
  Serious: Yes (Other)
  Sender: FDA-Public Use
  Company Number: US-ABBVIE-4200252

PATIENT
  Age: 57 Year
  Sex: Male
  Weight: 100.24 kg

DRUGS (2)
  1. SKYRIZI [Suspect]
     Active Substance: RISANKIZUMAB-RZAA
     Indication: Psoriasis
     Route: 058
  2. SKYRIZI [Suspect]
     Active Substance: RISANKIZUMAB-RZAA
     Route: 058

REACTIONS (5)
  - Skin cancer [Recovering/Resolving]
  - Headache [Unknown]
  - Fatigue [Unknown]
  - Limb injury [Recovering/Resolving]
  - Thermal burn [Unknown]

NARRATIVE: CASE EVENT DATE: 20220701
